FAERS Safety Report 15691637 (Version 3)
Quarter: 2019Q3

REPORT INFORMATION
  Report Type: Report from Study
  Country: US (occurrence: US)
  Receive Date: 20181205
  Receipt Date: 20190801
  Transmission Date: 20191004
  Serious: Yes (Other)
  Sender: FDA-Public Use
  Company Number: PHEH2018US050396

PATIENT
  Sex: Male

DRUGS (1)
  1. GILENYA [Suspect]
     Active Substance: FINGOLIMOD HYDROCHLORIDE
     Indication: MULTIPLE SCLEROSIS
     Dosage: 0.5 MG, QD
     Route: 048

REACTIONS (13)
  - Gait disturbance [Unknown]
  - Pain [Unknown]
  - Facial pain [Unknown]
  - Chest pain [Unknown]
  - Fracture [Unknown]
  - Fatigue [Unknown]
  - Substance abuse [Unknown]
  - Muscle spasms [Unknown]
  - Grip strength decreased [Unknown]
  - Hyperaesthesia [Unknown]
  - Muscle fatigue [Unknown]
  - Dizziness [Unknown]
  - Drug ineffective [Unknown]
